FAERS Safety Report 8542436-3 (Version None)
Quarter: 2012Q3

REPORT INFORMATION
  Report Type: 
  Country: None (occurrence: None)
  Receive Date: 20120726
  Receipt Date: 20111122
  Transmission Date: 20120928
  Serious: Yes (Other)
  Sender: FDA-Public Use
  Company Number: US-ASTRAZENECA-2005UW09992

PATIENT
  Age: 56 Year
  Sex: Female

DRUGS (10)
  1. BENADRYL [Concomitant]
     Dosage: FOUR TIMES A DAY
  2. SEROQUEL [Suspect]
     Dosage: 400 MG HS, 300 MG QD
     Route: 048
  3. SEROQUEL [Suspect]
     Dosage: 300 MG AM, 300 MG HS
     Route: 048
  4. SEROQUEL [Suspect]
     Route: 048
  5. ATIVAN [Concomitant]
  6. SEROQUEL [Suspect]
     Dosage: 300 MG AM, 300 MG HS
     Route: 048
  7. XANAX [Concomitant]
  8. SEROQUEL [Suspect]
     Route: 048
  9. PAXIL [Concomitant]
  10. TRILEPTAL [Concomitant]

REACTIONS (15)
  - OROPHARYNGEAL PAIN [None]
  - TARDIVE DYSKINESIA [None]
  - DYSTONIA [None]
  - COMMUNICATION DISORDER [None]
  - NERVOUSNESS [None]
  - GASTROINTESTINAL DISORDER [None]
  - DYSPHAGIA [None]
  - PSYCHOTIC DISORDER [None]
  - CONVULSION [None]
  - PANIC ATTACK [None]
  - PAIN IN EXTREMITY [None]
  - DRUG DOSE OMISSION [None]
  - GASTROOESOPHAGEAL REFLUX DISEASE [None]
  - FEELING ABNORMAL [None]
  - DRUG EFFECT DECREASED [None]
